FAERS Safety Report 8561301-9 (Version None)
Quarter: 2012Q3

REPORT INFORMATION
  Report Type: 
  Country: None (occurrence: None)
  Receive Date: 20120727
  Receipt Date: 20120727
  Transmission Date: 20120928
  Serious: Yes (Hospitalization)
  Sender: FDA-Public Use
  Company Number: None

PATIENT
  Age: 40 Year
  Sex: Female
  Weight: 105.4 kg

DRUGS (6)
  1. CALCIUM CARBONATE [Concomitant]
  2. CEFAZOLIN [Suspect]
     Indication: URINARY TRACT INFECTION
     Dosage: ONCE IV  RECENT
     Route: 042
  3. TYLENOL [Concomitant]
  4. VITAMIN AND MINERAL PRENATAL SUPPLEMENT W/ FOLIC ACID CAP [Concomitant]
  5. BENADRYL [Concomitant]
  6. FERROUS SULFATE TAB [Concomitant]

REACTIONS (1)
  - ANAPHYLACTIC REACTION [None]
